FAERS Safety Report 15335964 (Version 1)
Quarter: 2018Q4

REPORT INFORMATION
  Report Type: Spontaneous
  Country: IL (occurrence: IL)
  Receive Date: 20180830
  Receipt Date: 20180830
  Transmission Date: 20190204
  Serious: Yes (Hospitalization, Other)
  Sender: FDA-Public Use
  Company Number: IL-TEVA-2018-IL-948371

PATIENT
  Age: 6 Decade
  Sex: Female

DRUGS (1)
  1. ABITREN AMPOULES [Suspect]
     Active Substance: DICLOFENAC
     Route: 065

REACTIONS (4)
  - Adverse event [Recovered/Resolved]
  - Product substitution issue [Unknown]
  - Blood pressure fluctuation [Unknown]
  - Hypersensitivity [Unknown]
